FAERS Safety Report 20257514 (Version 1)
Quarter: 2021Q4

REPORT INFORMATION
  Report Type: Report from Study
  Country: IT (occurrence: IT)
  Receive Date: 20211230
  Receipt Date: 20211230
  Transmission Date: 20220304
  Serious: Yes (Other)
  Sender: FDA-Public Use
  Company Number: None

PATIENT
  Sex: Female
  Weight: 73 kg

DRUGS (9)
  1. FLUOROURACIL [Suspect]
     Active Substance: FLUOROURACIL
     Indication: Adenocarcinoma of colon
     Dosage: 540 MILLIGRAM, CYCLE/27-JUL-2017
     Route: 040
     Dates: end: 20170901
  2. FLUOROURACIL [Suspect]
     Active Substance: FLUOROURACIL
     Dosage: 3240 MILLIGRAM, CYCLE/ 27-JUL-2017
     Route: 042
     Dates: start: 20170727, end: 20170901
  3. ONIVYDE [Suspect]
     Active Substance: IRINOTECAN HYDROCHLORIDE
     Indication: Adenocarcinoma of colon
     Dosage: 200 MG, CYCLE/ START DATE: 27-JUL-2017
     Route: 042
     Dates: end: 20170901
  4. ERBITUX [Suspect]
     Active Substance: CETUXIMAB
     Indication: Adenocarcinoma of colon
     Dosage: 500 MILLIGRAM, CYCLE/ START DATE: 27-JUL-2017
     Route: 042
     Dates: end: 20170901
  5. CETUXIMAB [Suspect]
     Active Substance: CETUXIMAB
     Indication: Adenocarcinoma of colon
     Dosage: 500 MILLIGRAM, CYCLE/ 27-JUL-2017
     Route: 042
     Dates: end: 20170901
  6. CETUXIMAB [Suspect]
     Active Substance: CETUXIMAB
     Dosage: 500 MG, CYCLE
     Route: 042
  7. LEVOLEUCOVORIN [Suspect]
     Active Substance: LEVOLEUCOVORIN
     Indication: Adenocarcinoma of colon
     Dosage: 270 MILLIGRAM, CYCLE
  8. LEVOLEUCOVORIN [Suspect]
     Active Substance: LEVOLEUCOVORIN
     Dosage: UNK
  9. LEVOLEUCOVORIN [Concomitant]
     Active Substance: LEVOLEUCOVORIN
     Indication: Adenocarcinoma of colon
     Dosage: 270 MG, UNK

REACTIONS (4)
  - Asthenia [Recovering/Resolving]
  - Diarrhoea [Recovering/Resolving]
  - Stomatitis [Recovering/Resolving]
  - Off label use [Recovered/Resolved]

NARRATIVE: CASE EVENT DATE: 20170901
